FAERS Safety Report 17202607 (Version 1)
Quarter: 2019Q4

REPORT INFORMATION
  Report Type: Report from Study
  Country: US (occurrence: US)
  Receive Date: 20191226
  Receipt Date: 20191226
  Transmission Date: 20200122
  Serious: Yes (Other)
  Sender: FDA-Public Use
  Company Number: US-TAIHO ONCOLOGY  INC-EU-2019-04319

PATIENT
  Age: 74 Year
  Sex: Female

DRUGS (9)
  1. ASPIRIN. [Concomitant]
     Active Substance: ASPIRIN
     Dosage: NI
  2. VITAMIN B [Concomitant]
     Active Substance: VITAMIN B
     Dosage: NI
  3. VITAMIN D [Concomitant]
     Active Substance: VITAMIN D NOS
     Dosage: NI
  4. LISINOPRIL. [Concomitant]
     Active Substance: LISINOPRIL
     Dosage: NI
  5. SODIUM CHLORITE [Concomitant]
     Active Substance: SODIUM CHLORITE
     Dosage: NI
  6. CITALOPRAM [Concomitant]
     Active Substance: CITALOPRAM HYDROBROMIDE
     Dosage: NI
  7. IRON [Concomitant]
     Active Substance: IRON
     Dosage: NI
  8. JANUVIA [Concomitant]
     Active Substance: SITAGLIPTIN PHOSPHATE
     Dosage: NI
  9. LONSURF [Suspect]
     Active Substance: TIPIRACIL HYDROCHLORIDE\TRIFLURIDINE
     Indication: COLON CANCER
     Dosage: CURRENT CYCLE UNKNOWN
     Route: 048
     Dates: start: 20190924, end: 201912

REACTIONS (2)
  - Transfusion [Unknown]
  - White blood cell count decreased [Not Recovered/Not Resolved]

NARRATIVE: CASE EVENT DATE: 20191219
